FAERS Safety Report 25690779 (Version 1)
Quarter: 2025Q3

REPORT INFORMATION
  Report Type: Spontaneous
  Country: GB (occurrence: GB)
  Receive Date: 20250818
  Receipt Date: 20250818
  Transmission Date: 20251020
  Serious: Yes (Hospitalization, Disabling, Other)
  Sender: HIKMA
  Company Number: None

PATIENT
  Age: 27 Year
  Sex: Male
  Weight: 73 kg

DRUGS (1)
  1. CIPROFLOXACIN [Suspect]
     Active Substance: CIPROFLOXACIN
     Indication: Prostatitis
     Route: 065
     Dates: start: 20230311, end: 20230317

REACTIONS (8)
  - Asthenia [Not Recovered/Not Resolved]
  - Suicide attempt [Unknown]
  - Pain in extremity [Unknown]
  - Pain [Unknown]
  - Muscle atrophy [Unknown]
  - Loss of personal independence in daily activities [Unknown]
  - Medication error [Unknown]
  - Gait disturbance [Unknown]

NARRATIVE: CASE EVENT DATE: 20230311
